FAERS Safety Report 6610149-0 (Version None)
Quarter: 2010Q1

REPORT INFORMATION
  Report Type: 
  Country: None (occurrence: None)
  Receive Date: 20100219
  Receipt Date: 20100209
  Transmission Date: 20100710
  Serious: Yes (Hospitalization, Other)
  Sender: FDA-Public Use
  Company Number: AXC-2010-000035

PATIENT
  Age: 22 Year

DRUGS (2)
  1. MESALAMINE [Suspect]
     Indication: ABDOMINAL PAIN
     Dosage: 3 G, QD,
  2. MESALAMINE [Suspect]
     Indication: GASTROINTESTINAL DISORDER
     Dosage: 3 G, QD,

REACTIONS (9)
  - ACUTE PHASE REACTION [None]
  - DILATATION VENTRICULAR [None]
  - MYOPERICARDITIS [None]
  - PERICARDIAL EFFUSION [None]
  - PLEURITIC PAIN [None]
  - RECTAL HAEMORRHAGE [None]
  - TROPONIN T INCREASED [None]
  - VENTRICULAR DYSFUNCTION [None]
  - WHITE BLOOD CELL COUNT INCREASED [None]
